FAERS Safety Report 17526703 (Version 1)
Quarter: 2020Q1

REPORT INFORMATION
  Report Type: Spontaneous
  Country: US (occurrence: US)
  Receive Date: 20200303
  Receipt Date: 20200303
  Transmission Date: 20200409
  Serious: Yes (Death)
  Sender: FDA-Public Use
  Company Number: None

PATIENT
  Age: 70 Year
  Sex: Female

DRUGS (1)
  1. POMALYST [Suspect]
     Active Substance: POMALIDOMIDE
     Indication: PLASMA CELL MYELOMA
     Route: 048
     Dates: start: 20200115, end: 20200210

REACTIONS (5)
  - Humerus fracture [None]
  - Encephalopathy [None]
  - Fall [None]
  - Therapy cessation [None]
  - Hypercalcaemia [None]

NARRATIVE: CASE EVENT DATE: 20200223
